FAERS Safety Report 4420899-2 (Version None)
Quarter: 2004Q3

REPORT INFORMATION
  Report Type: 
  Country: None (occurrence: None)
  Receive Date: 20040804
  Receipt Date: 20040720
  Transmission Date: 20050211
  Serious: Yes (Death, Hospitalization, Other)
  Sender: FDA-Public Use
  Company Number: FR-2004-027141

PATIENT
  Age: 58 Year
  Sex: Male
  Weight: 73 kg

DRUGS (5)
  1. FLUDARA [Suspect]
     Dosage: 25 MG/M2, INTRAVENOUS
     Route: 042
     Dates: start: 20040211, end: 20040507
  2. CYCLOPHOSPHAMIDE [Suspect]
     Dosage: 250  MG/M2, INTRAVENOUS
     Route: 042
     Dates: start: 20040211, end: 20040507
  3. BACTRIM DS [Concomitant]
  4. LEDERFOLIN [Concomitant]
  5. VALACYCLOVIR HCL [Concomitant]

REACTIONS (12)
  - ACUTE RESPIRATORY DISTRESS SYNDROME [None]
  - ANAEMIA HAEMOLYTIC AUTOIMMUNE [None]
  - BUNDLE BRANCH BLOCK LEFT [None]
  - CARDIO-RESPIRATORY ARREST [None]
  - DISSEMINATED INTRAVASCULAR COAGULATION [None]
  - HAEMODYNAMIC INSTABILITY [None]
  - LUNG DISORDER [None]
  - MENDELSON'S SYNDROME [None]
  - MULTI-ORGAN FAILURE [None]
  - MYOCARDIAL INFARCTION [None]
  - RENAL FAILURE [None]
  - VOMITING [None]
